FAERS Safety Report 4645044-X (Version None)
Quarter: 2005Q2

REPORT INFORMATION
  Report Type: 
  Country: None (occurrence: None)
  Receive Date: 20050426
  Receipt Date: 20050414
  Transmission Date: 20051028
  Serious: Yes (Other)
  Sender: FDA-Public Use
  Company Number: GB-ROCHE-401889

PATIENT
  Age: 37 Year
  Sex: Male
  Weight: 120.7 kg

DRUGS (1)
  1. XENICAL [Suspect]
     Indication: OBESITY
     Route: 048
     Dates: start: 20050112, end: 20050408

REACTIONS (1)
  - BLOOD GLUCOSE DECREASED [None]
